FAERS Safety Report 5672358-7 (Version None)
Quarter: 2008Q1

REPORT INFORMATION
  Report Type: 
  Country: None (occurrence: None)
  Receive Date: 20080318
  Receipt Date: 20080318
  Transmission Date: 20080703
  Serious: Yes (Other)
  Sender: FDA-Public Use
  Company Number: None

PATIENT

DRUGS (1)
  1. AVELOX [Suspect]
     Dosage: 400MG ONCE IV
     Route: 042
     Dates: start: 20080229, end: 20080229

REACTIONS (2)
  - INFUSION SITE REACTION [None]
  - RASH MACULAR [None]
